FAERS Safety Report 9711687 (Version 2)
Quarter: 2013Q4

REPORT INFORMATION
  Report Type: Spontaneous
  Country: JP (occurrence: JP)
  Receive Date: 20131126
  Receipt Date: 20131213
  Transmission Date: 20140711
  Serious: Yes (Other)
  Sender: FDA-Public Use
  Company Number: JP-KOWA-2013S1002039

PATIENT
  Age: 70 Year
  Sex: Male

DRUGS (2)
  1. LIVALO [Suspect]
     Indication: HYPERLIPIDAEMIA
     Route: 048
     Dates: start: 20130614, end: 20131028
  2. ADALAT CR [Concomitant]
     Indication: HYPERTENSION
     Route: 048
     Dates: start: 20130614, end: 20131028

REACTIONS (1)
  - Renal impairment [Unknown]
